FAERS Safety Report 24682948 (Version 2)
Quarter: 2024Q4

REPORT INFORMATION
  Report Type: Report from Study
  Country: US (occurrence: US)
  Receive Date: 20241201
  Receipt Date: 20241226
  Transmission Date: 20250115
  Serious: Yes (Hospitalization)
  Sender: ALEXION PHARMACEUTICALS
  Company Number: US-AstraZeneca-CH-00750215A

PATIENT

DRUGS (4)
  1. DURVALUMAB [Suspect]
     Active Substance: DURVALUMAB
     Route: 065
  2. DURVALUMAB [Suspect]
     Active Substance: DURVALUMAB
     Route: 065
  3. DURVALUMAB [Suspect]
     Active Substance: DURVALUMAB
     Route: 065
  4. DURVALUMAB [Suspect]
     Active Substance: DURVALUMAB
     Route: 065

REACTIONS (2)
  - Dysphagia [Unknown]
  - Product dose omission issue [Unknown]
